FAERS Safety Report 6178276-2 (Version None)
Quarter: 2009Q2

REPORT INFORMATION
  Report Type: 
  Country: None (occurrence: None)
  Receive Date: 20090504
  Receipt Date: 20090423
  Transmission Date: 20091009
  Serious: Yes (Hospitalization)
  Sender: FDA-Public Use
  Company Number: B0564425A

PATIENT
  Sex: Male
  Weight: 55 kg

DRUGS (2)
  1. SERETIDE [Suspect]
     Indication: ASTHMA
     Dosage: 500MCG TWICE PER DAY
     Route: 055
     Dates: start: 20080908
  2. LEUPLIN [Concomitant]
     Route: 058

REACTIONS (10)
  - ADRENAL INSUFFICIENCY [None]
  - BLOOD CORTISOL DECREASED [None]
  - BLOOD POTASSIUM INCREASED [None]
  - CREPITATIONS [None]
  - FATIGUE [None]
  - LISTLESS [None]
  - MALAISE [None]
  - OEDEMA PERIPHERAL [None]
  - VOMITING [None]
  - WHEEZING [None]
